FAERS Safety Report 5197871-0 (Version None)
Quarter: 2006Q4

REPORT INFORMATION
  Report Type: 
  Country: None (occurrence: None)
  Receive Date: 20061228
  Receipt Date: 20061221
  Transmission Date: 20070319
  Serious: Yes (Hospitalization, Other)
  Sender: FDA-Public Use
  Company Number: 163-21880-06110538

PATIENT
  Age: 56 Year
  Sex: Female

DRUGS (3)
  1. REVLIMID [Suspect]
     Indication: MYELODYSPLASTIC SYNDROME
     Dosage: 10 MG, 1 IN 1 D, ORAL
     Route: 048
     Dates: start: 20060801, end: 20060917
  2. EXJADE [Concomitant]
  3. IMODIUM A-D [Concomitant]

REACTIONS (10)
  - BLOOD AMYLASE INCREASED [None]
  - CHRONIC OBSTRUCTIVE PULMONARY DISEASE [None]
  - ELECTROLYTE DEPLETION [None]
  - HYPERSPLENISM [None]
  - HYPOKALAEMIA [None]
  - LIPASE INCREASED [None]
  - NEPHROPATHY [None]
  - PANCYTOPENIA [None]
  - PULMONARY OEDEMA [None]
  - RENAL TUBULAR ACIDOSIS [None]
